FAERS Safety Report 20793807 (Version 1)
Quarter: 2022Q2

REPORT INFORMATION
  Report Type: Spontaneous
  Country: HR (occurrence: HR)
  Receive Date: 20220506
  Receipt Date: 20220506
  Transmission Date: 20220720
  Serious: Yes (Death, Hospitalization, Other)
  Sender: FDA-Public Use
  Company Number: None

PATIENT
  Age: 64 Year
  Sex: Female

DRUGS (4)
  1. HYDROXYUREA [Suspect]
     Active Substance: HYDROXYUREA
     Indication: Myeloproliferative neoplasm
     Dosage: 1 DNEVNO PRVI DAN, 2X1 DNEVNO DRUGI DAN, NAIZMJENI?NO
     Route: 048
     Dates: start: 20220112, end: 20220227
  2. HYDROXYUREA [Suspect]
     Active Substance: HYDROXYUREA
     Indication: Thrombocytosis
     Dosage: 1 DNEVNO PRVI DAN, 2X1 DNEVNO DRUGI DAN, NAIZMJENI?NO
     Route: 048
     Dates: start: 20220112, end: 20220227
  3. WARFARIN [Interacting]
     Active Substance: WARFARIN
     Indication: Endarterectomy
     Dosage: 1 TBL PRVI DAN, 1/2 TBL DRUGI DAN (NAIZMJENI?NO)
     Route: 048
     Dates: start: 20210220, end: 20220227
  4. WARFARIN [Interacting]
     Active Substance: WARFARIN
     Indication: Stent placement
     Dosage: 1 TBL PRVI DAN, 1/2 TBL DRUGI DAN (NAIZMJENI?NO)
     Route: 048
     Dates: start: 20210220, end: 20220227

REACTIONS (8)
  - Loss of consciousness [Recovered/Resolved]
  - Blood loss anaemia [Recovering/Resolving]
  - Subarachnoid haemorrhage [Recovering/Resolving]
  - Haemorrhage intracranial [Recovering/Resolving]
  - Brain oedema [Fatal]
  - Thrombocytopenia [Recovering/Resolving]
  - Cerebral ischaemia [Fatal]
  - Drug interaction [Fatal]

NARRATIVE: CASE EVENT DATE: 20220228
